FAERS Safety Report 20854865 (Version 1)
Quarter: 2022Q2

REPORT INFORMATION
  Report Type: Spontaneous
  Country: US (occurrence: None)
  Receive Date: 20220520
  Receipt Date: 20220520
  Transmission Date: 20220721
  Serious: Yes (Hospitalization)
  Sender: FDA-Public Use
  Company Number: None

PATIENT
  Age: 27 Year
  Sex: Male
  Weight: 76.6 kg

DRUGS (5)
  1. CISPLATIN [Suspect]
     Active Substance: CISPLATIN
     Dates: end: 20220503
  2. IFOSFAMIDE [Suspect]
     Active Substance: IFOSFAMIDE
     Dates: end: 20220503
  3. IFOSFAMIDE [Suspect]
     Active Substance: IFOSFAMIDE
  4. TAXOL [Suspect]
     Active Substance: PACLITAXEL
     Dates: end: 20220429
  5. NEULASTA [Suspect]
     Active Substance: PEGFILGRASTIM
     Dates: end: 20220504

REACTIONS (2)
  - Neutropenic sepsis [None]
  - COVID-19 [None]

NARRATIVE: CASE EVENT DATE: 20220507
